FAERS Safety Report 7987287-3 (Version None)
Quarter: 2011Q4

REPORT INFORMATION
  Report Type: 
  Country: None (occurrence: None)
  Receive Date: 20111216
  Receipt Date: 20110426
  Transmission Date: 20120403
  Serious: No
  Sender: FDA-Public Use
  Company Number: US-BRISTOL-MYERS SQUIBB COMPANY-15645013

PATIENT
  Age: 13 Year
  Sex: Male
  Weight: 63 kg

DRUGS (5)
  1. METHYLPHENIDATE [Concomitant]
     Dosage: AT 3PM
  2. ABILIFY [Suspect]
     Indication: BIPOLAR DISORDER
     Dosage: 12NOV10 DOSE INC TO 7.5MG,25DEC10 RED TO 5MG,27DEC10 RED TO 2.5MG,INC TO 6.5 ON 27JAN11 TO 7.5MG
     Dates: start: 20101108
  3. RITALIN LA [Concomitant]
     Dosage: MORNING
  4. SEROQUEL [Concomitant]
  5. MOTRIN [Concomitant]

REACTIONS (3)
  - ABNORMAL BEHAVIOUR [None]
  - HEADACHE [None]
  - DRUG INEFFECTIVE [None]
